FAERS Safety Report 14602378 (Version 1)
Quarter: 2018Q1

REPORT INFORMATION
  Report Type: Spontaneous
  Country: US (occurrence: US)
  Receive Date: 20180306
  Receipt Date: 20180306
  Transmission Date: 20180509
  Serious: No
  Sender: FDA-Public Use
  Company Number: US-PFIZER INC-2018084991

PATIENT
  Age: 87 Year
  Sex: Male

DRUGS (1)
  1. ALPRAZOLAM. [Suspect]
     Active Substance: ALPRAZOLAM
     Dosage: 0.25 DF, 4X/DAY (CRACKS THE 1MG IN HALF AND THEN CRACKS THE HALF IN HALF AGAIN AND TAKES A QUARTER)

REACTIONS (5)
  - Hyperventilation [Unknown]
  - Drug tolerance [Unknown]
  - Insomnia [Unknown]
  - Abnormal dreams [Unknown]
  - Asthenia [Unknown]
